FAERS Safety Report 6962163-3 (Version None)
Quarter: 2010Q3

REPORT INFORMATION
  Report Type: 
  Country: None (occurrence: None)
  Receive Date: 20100902
  Receipt Date: 20100830
  Transmission Date: 20110219
  Serious: Yes (Death, Hospitalization)
  Sender: FDA-Public Use
  Company Number: PHHY2010CA32877

PATIENT
  Sex: Female

DRUGS (2)
  1. SANDOSTATIN LAR [Suspect]
     Indication: CARCINOID TUMOUR
     Dosage: 30 MG EVERY 4 WEEKS
     Route: 030
     Dates: start: 20071105
  2. SANDOSTATIN LAR [Suspect]
     Dosage: 10 MG EVERY 4 WEEKS
     Route: 030

REACTIONS (3)
  - CONSTIPATION [None]
  - FATIGUE [None]
  - PNEUMONIA [None]
